FAERS Safety Report 14413309 (Version 3)
Quarter: 2018Q1

REPORT INFORMATION
  Report Type: Spontaneous
  Country: JP (occurrence: JP)
  Receive Date: 20180119
  Receipt Date: 20180226
  Transmission Date: 20180509
  Serious: Yes (Life-Threatening, Other)
  Sender: FDA-Public Use
  Company Number: JP-PFIZER INC-2018025227

PATIENT
  Age: 69 Year
  Sex: Male
  Weight: 77 kg

DRUGS (7)
  1. VECTIBIX [Concomitant]
     Active Substance: PANITUMUMAB
     Dosage: 466 MG/BODY
     Dates: start: 20160907, end: 20160907
  2. CAMPTO [Suspect]
     Active Substance: IRINOTECAN
     Indication: RECTAL CANCER
     Dosage: 340 MG, 1X/DAY (340 MG/BODY (178.1 MG/M2)
     Route: 041
     Dates: start: 20160907, end: 20160907
  3. LEVOLEUCOVORIN CALCIUM. [Suspect]
     Active Substance: LEVOLEUCOVORIN CALCIUM
     Indication: RECTAL CANCER
     Dosage: 375 MG, 1X/DAY (375 MG/BODY (196.4 MG/M2)
     Route: 041
     Dates: start: 20160907, end: 20160907
  4. 5-FU /00098801/ [Concomitant]
     Active Substance: FLUOROURACIL
     Indication: RECTAL CANCER
     Dosage: 750 MG, 1X/DAY (750 MG/BODY (392.9 MG/M2)
     Route: 040
     Dates: start: 20160907, end: 20160907
  5. DEXART [Concomitant]
     Active Substance: DEXAMETHASONE SODIUM PHOSPHATE
     Dosage: UNK
     Dates: start: 20160907, end: 20160907
  6. 5-FU /00098801/ [Concomitant]
     Active Substance: FLUOROURACIL
     Dosage: 4500 MG, ONCE IN 2 DAYS (4500 MG/BODY/D1-2 (2357.3 MG/M2/D1-2)
     Route: 041
     Dates: start: 20160907, end: 20160907
  7. ALOXI [Concomitant]
     Active Substance: PALONOSETRON HYDROCHLORIDE
     Dosage: UNK
     Dates: start: 20160907, end: 20160907

REACTIONS (5)
  - White blood cell count decreased [Recovered/Resolved]
  - Diarrhoea [Unknown]
  - Septic shock [Recovered/Resolved]
  - Febrile neutropenia [Recovered/Resolved]
  - Platelet count decreased [Recovering/Resolving]

NARRATIVE: CASE EVENT DATE: 20160914
